FAERS Safety Report 5073814-5 (Version None)
Quarter: 2006Q3

REPORT INFORMATION
  Report Type: 
  Country: None (occurrence: None)
  Receive Date: 20060808
  Receipt Date: 20060728
  Transmission Date: 20061208
  Serious: Yes (Hospitalization)
  Sender: FDA-Public Use
  Company Number: PHRM2006FR02207

PATIENT
  Age: 40 Year
  Sex: Female

DRUGS (3)
  1. TAXOTERE [Suspect]
     Indication: METASTASES TO BONE
     Dosage: UNK, QW
     Route: 042
     Dates: start: 20060322, end: 20060621
  2. HERCEPTIN [Suspect]
     Indication: METASTASES TO BONE
     Dosage: UNK, QW
     Route: 042
     Dates: start: 20060322, end: 20060621
  3. ZOMETA [Suspect]
     Indication: METASTASES TO BONE
     Dosage: 4 MG, QMO
     Route: 042
     Dates: start: 20060322, end: 20060621

REACTIONS (1)
  - ASCITES [None]
